FAERS Safety Report 6124366-X (Version None)
Quarter: 2009Q1

REPORT INFORMATION
  Report Type: 
  Country: None (occurrence: None)
  Receive Date: 20090318
  Receipt Date: 20090318
  Transmission Date: 20090719
  Serious: Yes (Life-Threatening, Hospitalization, Disabling, Other)
  Sender: FDA-Public Use
  Company Number: None

PATIENT
  Age: 30 Year
  Sex: Female
  Weight: 45.3597 kg

DRUGS (1)
  1. METHADONE HCL [Suspect]
     Dosage: 150 DAILY PO
     Route: 048

REACTIONS (6)
  - COMPLETED SUICIDE [None]
  - DEATH OF RELATIVE [None]
  - DEPENDENCE [None]
  - DRUG EXPOSURE DURING PREGNANCY [None]
  - MATERNAL USE OF ILLICIT DRUGS [None]
  - PREGNANCY [None]
